FAERS Safety Report 6358365-X (Version None)
Quarter: 2009Q3

REPORT INFORMATION
  Report Type: 
  Country: None (occurrence: None)
  Receive Date: 20090916
  Receipt Date: 20090907
  Transmission Date: 20100115
  Serious: Yes (Hospitalization)
  Sender: FDA-Public Use
  Company Number: JP-PFIZER INC-2009268705

PATIENT
  Age: 77 Year

DRUGS (9)
  1. LIPITOR [Suspect]
     Dosage: 10 MG, 1X/DAY
     Route: 048
     Dates: end: 20090825
  2. SUNRYTHM [Concomitant]
     Dosage: UNK
  3. SIGMART [Concomitant]
     Dosage: UNK
     Route: 048
  4. CELECOXIB [Concomitant]
     Dosage: UNK
  5. GASMOTIN [Concomitant]
     Dosage: UNK
     Route: 048
  6. GASCON [Concomitant]
     Dosage: UNK
     Route: 048
  7. BIOFERMIN [Concomitant]
     Dosage: UNK
     Route: 048
  8. RISEDRONATE SODIUM [Concomitant]
     Dosage: UNK
     Route: 048
     Dates: end: 20090825
  9. FLUITRAN [Concomitant]
     Dosage: UNK
     Route: 048
     Dates: end: 20090825

REACTIONS (1)
  - TORTICOLLIS [None]
